FAERS Safety Report 20365271 (Version 2)
Quarter: 2022Q2

REPORT INFORMATION
  Report Type: Spontaneous
  Country: DE (occurrence: None)
  Receive Date: 20220122
  Receipt Date: 20220402
  Transmission Date: 20220721
  Serious: Yes (Death, Hospitalization)
  Sender: FDA-Public Use
  Company Number: DE-ROCHE-3002212

PATIENT
  Age: 62 Year
  Sex: Male
  Weight: 81 kg

DRUGS (9)
  1. TECENTRIQ [Suspect]
     Active Substance: ATEZOLIZUMAB
     Indication: Hepatocellular carcinoma
     Route: 065
     Dates: start: 20211208
  2. AVASTIN [Suspect]
     Active Substance: BEVACIZUMAB
     Indication: Hepatocellular carcinoma
     Route: 042
     Dates: start: 20211208
  3. CARVEDILOL [Concomitant]
     Active Substance: CARVEDILOL
     Indication: Varicose vein
     Dates: start: 2010
  4. PANTOPRAZOLE SODIUM [Concomitant]
     Active Substance: PANTOPRAZOLE SODIUM
     Dosage: 40 UNIT NOT REPORTED
     Route: 065
  5. SPIRONOLACTONE [Concomitant]
     Active Substance: SPIRONOLACTONE
     Dosage: 100 UNIT NOT REPORTED
  6. TORSEMIDE [Concomitant]
     Active Substance: TORSEMIDE
     Dosage: 10 UNIT NOT REPORTED
  7. THIAMINE [Concomitant]
     Active Substance: THIAMINE
     Dosage: 100 UNIT NOT REPORTED
  8. CALCIUM [Concomitant]
     Active Substance: CALCIUM
     Dosage: 500 UNIT NOT REPORTED
  9. MAGNESIUM [Concomitant]
     Active Substance: MAGNESIUM

REACTIONS (2)
  - Pemphigoid [Fatal]
  - Hepatic cirrhosis [Fatal]

NARRATIVE: CASE EVENT DATE: 20211218
